FAERS Safety Report 7025005-6 (Version None)
Quarter: 2010Q4

REPORT INFORMATION
  Report Type: 
  Country: None (occurrence: None)
  Receive Date: 20101001
  Receipt Date: 20100927
  Transmission Date: 20110411
  Serious: Yes (Death, Hospitalization)
  Sender: FDA-Public Use
  Company Number: GR-ABBOTT-10P-066-0673280-00

PATIENT
  Age: 70 Year
  Sex: Female

DRUGS (3)
  1. HUMIRA [Suspect]
     Indication: CROHN'S DISEASE
     Dates: start: 20100101, end: 20100101
  2. PREDNISOLONE [Concomitant]
     Indication: CROHN'S DISEASE
     Dates: start: 20100101, end: 20100101
  3. MTX [Concomitant]
     Indication: CROHN'S DISEASE
     Dates: start: 20100101, end: 20100101

REACTIONS (3)
  - ACUTE ABDOMEN [None]
  - OVERDOSE [None]
  - SEPSIS [None]
